FAERS Safety Report 10129608 (Version 1)
Quarter: 2014Q2

REPORT INFORMATION
  Report Type: Spontaneous
  Country: US (occurrence: US)
  Receive Date: 20140428
  Receipt Date: 20140428
  Transmission Date: 20141212
  Serious: No
  Sender: FDA-Public Use
  Company Number: US-PFIZER INC-2014112938

PATIENT
  Sex: Female

DRUGS (2)
  1. NITROSTAT [Suspect]
     Indication: CARDIAC DISORDER
     Dosage: UNK
     Dates: start: 2014
  2. NITROSTAT [Suspect]
     Dosage: 3 DF, UNK
     Dates: start: 2014

REACTIONS (2)
  - Anorectal discomfort [Unknown]
  - Vulvovaginal burning sensation [Unknown]
